FAERS Safety Report 24898243 (Version 1)
Quarter: 2025Q1

REPORT INFORMATION
  Report Type: Report from Study
  Country: CA (occurrence: CA)
  Receive Date: 20250129
  Receipt Date: 20250129
  Transmission Date: 20250408
  Serious: Yes (Other)
  Sender: NOVARTIS
  Company Number: CA-002147023-NVSC2025CA014987

PATIENT
  Age: 31 Year
  Sex: Female

DRUGS (2)
  1. COSENTYX [Suspect]
     Active Substance: SECUKINUMAB
     Indication: Ankylosing spondylitis
     Route: 058
     Dates: start: 20250108
  2. COSENTYX [Suspect]
     Active Substance: SECUKINUMAB
     Route: 058
     Dates: start: 20250122

REACTIONS (8)
  - Blindness transient [Unknown]
  - Syncope [Unknown]
  - Presyncope [Unknown]
  - Dizziness [Unknown]
  - Tremor [Unknown]
  - Nausea [Not Recovered/Not Resolved]
  - Throat tightness [Unknown]
  - Fatigue [Unknown]

NARRATIVE: CASE EVENT DATE: 20250122
